FAERS Safety Report 21228667 (Version 1)
Quarter: 2022Q3

REPORT INFORMATION
  Report Type: Spontaneous
  Country: US (occurrence: None)
  Receive Date: 20220818
  Receipt Date: 20220818
  Transmission Date: 20221027
  Serious: Yes (Other)
  Sender: FDA-Public Use
  Company Number: None

PATIENT
  Age: 27 Year
  Sex: Female
  Weight: 70 kg

DRUGS (1)
  1. MAVYRET [Suspect]
     Active Substance: GLECAPREVIR\PIBRENTASVIR
     Indication: Hepatitis C
     Dosage: OTHER QUANTITY : 100/40MG ;?FREQUENCY : DAILY;?
     Route: 048
     Dates: start: 20210805, end: 20210922

REACTIONS (3)
  - Therapy cessation [None]
  - Viral load increased [None]
  - Drug ineffective [None]

NARRATIVE: CASE EVENT DATE: 20210805
